FAERS Safety Report 7448091-8 (Version None)
Quarter: 2011Q2

REPORT INFORMATION
  Report Type: 
  Country: None (occurrence: None)
  Receive Date: 20110429
  Receipt Date: 20100526
  Transmission Date: 20111010
  Serious: No
  Sender: FDA-Public Use
  Company Number: US-ASTRAZENECA-2008UW19274

PATIENT
  Age: 65 Year
  Sex: Female
  Weight: 70.3 kg

DRUGS (6)
  1. VITAMINS [Concomitant]
  2. DIOVAN [Concomitant]
  3. VALIUM [Concomitant]
  4. NEXIUM [Suspect]
     Indication: DYSPEPSIA
     Route: 048
  5. DETROL [Concomitant]
  6. VALTREX [Concomitant]

REACTIONS (17)
  - NAUSEA [None]
  - BREAST TENDERNESS [None]
  - RASH PRURITIC [None]
  - HOT FLUSH [None]
  - DRUG DOSE OMISSION [None]
  - ABDOMINAL DISTENSION [None]
  - COUGH [None]
  - DYSURIA [None]
  - ABDOMINAL PAIN UPPER [None]
  - RENAL DISORDER [None]
  - TONGUE DISORDER [None]
  - URINARY TRACT INFECTION [None]
  - CHEST DISCOMFORT [None]
  - NIPPLE PAIN [None]
  - DRY MOUTH [None]
  - DIARRHOEA [None]
  - BLOOD URINE PRESENT [None]
